FAERS Safety Report 7950379-9 (Version None)
Quarter: 2011Q4

REPORT INFORMATION
  Report Type: 
  Country: None (occurrence: None)
  Receive Date: 20111130
  Receipt Date: 20111121
  Transmission Date: 20120403
  Serious: Yes (Other)
  Sender: FDA-Public Use
  Company Number: TW-AMGEN-TWNSP2011061517

PATIENT
  Age: 37 Year
  Sex: Female
  Weight: 68.6 kg

DRUGS (1)
  1. GRAN [Suspect]
     Indication: HAEMATOPOIETIC STEM CELL MOBILISATION
     Dosage: 10 MUG/KG, UNK

REACTIONS (8)
  - INSOMNIA [None]
  - MALAISE [None]
  - DECREASED APPETITE [None]
  - HYPERHIDROSIS [None]
  - VOMITING [None]
  - BONE PAIN [None]
  - HEADACHE [None]
  - MYALGIA [None]
